FAERS Safety Report 17990660 (Version 2)
Quarter: 2020Q4

REPORT INFORMATION
  Report Type: Spontaneous
  Country: US (occurrence: US)
  Receive Date: 20200707
  Receipt Date: 20201008
  Transmission Date: 20210113
  Serious: No
  Sender: FDA-Public Use
  Company Number: US-009507513-2007USA001491

PATIENT
  Age: 39 Year
  Sex: Female

DRUGS (2)
  1. SINGULAIR [Concomitant]
     Active Substance: MONTELUKAST SODIUM
     Dosage: UNK
     Route: 048
  2. PROVENTIL [Suspect]
     Active Substance: ALBUTEROL
     Indication: ASTHMA
     Dosage: 2 PUFFS EVERY 4 HOURS AS NEEDED
     Dates: start: 2000

REACTIONS (8)
  - Wrong technique in device usage process [Unknown]
  - Poor quality device used [Unknown]
  - Product quality issue [Unknown]
  - Product quality issue [Unknown]
  - Asthma [Not Recovered/Not Resolved]
  - Poor quality device used [Unknown]
  - Product use in unapproved indication [Unknown]
  - Product use issue [Unknown]

NARRATIVE: CASE EVENT DATE: 2000
